FAERS Safety Report 10775006 (Version 2)
Quarter: 2015Q2

REPORT INFORMATION
  Report Type: Spontaneous
  Country: US (occurrence: US)
  Receive Date: 20150209
  Receipt Date: 20150511
  Transmission Date: 20150821
  Serious: Yes (Other)
  Sender: FDA-Public Use
  Company Number: US-AMGEN-USASP2015010893

PATIENT
  Age: 33 Year
  Sex: Female
  Weight: 99 kg

DRUGS (1)
  1. PROCRIT [Suspect]
     Active Substance: ERYTHROPOIETIN
     Indication: DIALYSIS
     Dosage: 10000 UNIT, ONE TIME ORDER
     Route: 065
     Dates: start: 20150131, end: 2015

REACTIONS (1)
  - Dialysis [Unknown]

NARRATIVE: CASE EVENT DATE: 20150131
